FAERS Safety Report 17949603 (Version 1)
Quarter: 2020Q2

REPORT INFORMATION
  Report Type: Spontaneous
  Country: US (occurrence: US)
  Receive Date: 20200625
  Receipt Date: 20200625
  Transmission Date: 20200714
  Serious: Yes (Hospitalization)
  Sender: FDA-Public Use
  Company Number: US-ASTRAZENECA-2020SE79712

PATIENT
  Age: 727 Month
  Sex: Female
  Weight: 119.7 kg

DRUGS (3)
  1. LISINOPRIL. [Suspect]
     Active Substance: LISINOPRIL
     Indication: HYPERTENSION
     Route: 048
     Dates: start: 202003
  2. BYDUREON [Suspect]
     Active Substance: EXENATIDE
     Indication: DIABETES MELLITUS
     Route: 058
     Dates: start: 201906
  3. CARVEDLILOL [Concomitant]
     Indication: HYPERTENSION
     Route: 048
     Dates: start: 202003

REACTIONS (4)
  - Wrong technique in device usage process [Unknown]
  - Sleep apnoea syndrome [Unknown]
  - Device malfunction [Unknown]
  - Hypertension [Unknown]

NARRATIVE: CASE EVENT DATE: 201906
